FAERS Safety Report 18151624 (Version 1)
Quarter: 2020Q3

REPORT INFORMATION
  Report Type: Spontaneous
  Country: CN (occurrence: CN)
  Receive Date: 20200814
  Receipt Date: 20200814
  Transmission Date: 20201103
  Serious: Yes (Other)
  Sender: FDA-Public Use
  Company Number: CN-PFIZER INC-2020304324

PATIENT
  Age: 32 Year
  Sex: Male
  Weight: 100 kg

DRUGS (1)
  1. ZYVOX [Suspect]
     Active Substance: LINEZOLID
     Indication: SYMPTOMATIC TREATMENT
     Dosage: 300 ML, 2X/DAY
     Route: 041
     Dates: start: 20200725, end: 20200725

REACTIONS (5)
  - Pruritus [Recovering/Resolving]
  - Rash erythematous [Recovering/Resolving]
  - Skin exfoliation [Recovering/Resolving]
  - Drug eruption [Recovering/Resolving]
  - Rash [Recovering/Resolving]

NARRATIVE: CASE EVENT DATE: 20200725
